FAERS Safety Report 25836960 (Version 1)
Quarter: 2025Q3

REPORT INFORMATION
  Report Type: Spontaneous
  Country: US (occurrence: None)
  Receive Date: 20250922
  Receipt Date: 20250922
  Transmission Date: 20251021
  Serious: Yes (unspecified)
  Sender: FDA-CTU
  Company Number: None

PATIENT
  Age: 79 Year
  Sex: Female
  Weight: 56.7 kg

DRUGS (9)
  1. FLUOROURACIL [Suspect]
     Active Substance: FLUOROURACIL
     Indication: Basal cell carcinoma
     Dosage: OTHER ROUTE : ON THE SKIN ;?
     Route: 061
     Dates: start: 20250601, end: 20250615
  2. ATORVASTATIN [Concomitant]
     Active Substance: ATORVASTATIN
     Dosage: FREQUENCY : DAILY;?
  3. VITAMINS [Concomitant]
     Active Substance: VITAMINS
  4. CALCIUM [Concomitant]
     Active Substance: CALCIUM
  5. TUMERIC CURCUMIN [Concomitant]
  6. MINERALS\VITAMINS [Concomitant]
     Active Substance: MINERALS\VITAMINS
  7. MAGNESIUM [Concomitant]
     Active Substance: MAGNESIUM
  8. ALIGN [Concomitant]
     Active Substance: BIFIDOBACTERIUM LONGUM SUBSP. INFANTIS
  9. DOXYLAMINE SUCCINATE [Concomitant]
     Active Substance: DOXYLAMINE SUCCINATE

REACTIONS (3)
  - Hyperkeratosis [None]
  - Application site scab [None]
  - Drug ineffective [None]

NARRATIVE: CASE EVENT DATE: 20250601
